FAERS Safety Report 10502898 (Version 1)
Quarter: 2014Q4

REPORT INFORMATION
  Report Type: Report from Study
  Country: BR (occurrence: BR)
  Receive Date: 20141007
  Receipt Date: 20141007
  Transmission Date: 20150528
  Serious: Yes (Other)
  Sender: FDA-Public Use
  Company Number: PHHY2014BR130299

PATIENT
  Sex: Female
  Weight: 28 kg

DRUGS (6)
  1. RIVOTRIL [Suspect]
     Active Substance: CLONAZEPAM
     Indication: ANXIETY
  2. TRILEPTAL [Suspect]
     Active Substance: OXCARBAZEPINE
     Indication: ANXIETY
     Dosage: 10 ML, QD
     Route: 048
  3. ACETAMINOPHEN. [Concomitant]
     Active Substance: ACETAMINOPHEN
     Indication: PYREXIA
  4. RIVOTRIL [Suspect]
     Active Substance: CLONAZEPAM
     Indication: AGITATION
     Dosage: 10 GTT, BID (IN THE MORNING AND AT NIGHT)
     Route: 048
  5. ACETAMINOPHEN. [Concomitant]
     Active Substance: ACETAMINOPHEN
     Indication: PAIN
  6. ACETAMINOPHEN. [Concomitant]
     Active Substance: ACETAMINOPHEN
     Indication: VIRAL INFECTION
     Dates: end: 20140910

REACTIONS (3)
  - Insomnia [Recovering/Resolving]
  - Drug dependence [Recovering/Resolving]
  - Drug ineffective [Recovering/Resolving]
